FAERS Safety Report 13654572 (Version 25)
Quarter: 2023Q1

REPORT INFORMATION
  Report Type: Other
  Country: CA (occurrence: None)
  Receive Date: 20170615
  Receipt Date: 20230328
  Transmission Date: 20230417
  Serious: Yes (Hospitalization, Other)
  Sender: FDA-Public Use
  Company Number: CA-ROCHE-1136232

PATIENT
  Age: 29 Year
  Sex: Female
  Weight: 87 kg

DRUGS (28)
  1. ACTEMRA [Suspect]
     Active Substance: TOCILIZUMAB
     Indication: Rheumatoid arthritis
     Route: 042
     Dates: start: 20120223, end: 20121004
  2. ACTEMRA [Suspect]
     Active Substance: TOCILIZUMAB
     Route: 042
     Dates: start: 20121030, end: 20121129
  3. ACTEMRA [Suspect]
     Active Substance: TOCILIZUMAB
     Route: 042
     Dates: start: 20150623, end: 20151013
  4. ACTEMRA [Suspect]
     Active Substance: TOCILIZUMAB
     Route: 042
     Dates: start: 20151214
  5. ACTEMRA [Suspect]
     Active Substance: TOCILIZUMAB
     Route: 042
     Dates: start: 20160603
  6. ACTEMRA [Suspect]
     Active Substance: TOCILIZUMAB
     Route: 042
     Dates: start: 20170609
  7. ACTEMRA [Suspect]
     Active Substance: TOCILIZUMAB
     Dosage: 46 INFUSION
     Route: 042
     Dates: start: 20180406
  8. ACTEMRA [Suspect]
     Active Substance: TOCILIZUMAB
     Route: 042
     Dates: start: 20151112, end: 20160502
  9. ACTEMRA [Suspect]
     Active Substance: TOCILIZUMAB
     Route: 042
     Dates: start: 20230324
  10. METHOTREXATE [Concomitant]
     Active Substance: METHOTREXATE
     Route: 048
  11. LYRICA [Concomitant]
     Active Substance: PREGABALIN
  12. PLAQUENIL [Concomitant]
     Active Substance: HYDROXYCHLOROQUINE SULFATE
  13. FOLIC ACID [Concomitant]
     Active Substance: FOLIC ACID
  14. SOLU-CORTEF [Concomitant]
     Active Substance: HYDROCORTISONE SODIUM SUCCINATE
     Indication: Premedication
     Route: 042
     Dates: start: 20160720, end: 20160816
  15. SOLU-CORTEF [Concomitant]
     Active Substance: HYDROCORTISONE SODIUM SUCCINATE
     Route: 042
     Dates: start: 20161101, end: 20161129
  16. SOLU-CORTEF [Concomitant]
     Active Substance: HYDROCORTISONE SODIUM SUCCINATE
     Route: 042
     Dates: start: 20161229
  17. CYMBALTA [Concomitant]
     Active Substance: DULOXETINE HYDROCHLORIDE
  18. COLCHICINE [Concomitant]
     Active Substance: COLCHICINE
  19. BENADRYL [Concomitant]
     Active Substance: DIPHENHYDRAMINE HYDROCHLORIDE
     Indication: Premedication
     Route: 042
  20. BENADRYL [Concomitant]
     Active Substance: DIPHENHYDRAMINE HYDROCHLORIDE
     Route: 042
     Dates: start: 20160720
  21. BENADRYL [Concomitant]
     Active Substance: DIPHENHYDRAMINE HYDROCHLORIDE
     Route: 048
  22. BENADRYL [Concomitant]
     Active Substance: DIPHENHYDRAMINE HYDROCHLORIDE
     Route: 042
     Dates: start: 20171215
  23. GRAVOL [Concomitant]
     Active Substance: DIMENHYDRINATE
     Indication: Premedication
     Route: 042
     Dates: start: 20160720
  24. GRAVOL [Concomitant]
     Active Substance: DIMENHYDRINATE
     Route: 042
  25. GRAVOL [Concomitant]
     Active Substance: DIMENHYDRINATE
     Route: 042
     Dates: start: 20171215
  26. SINGULAIR [Concomitant]
     Active Substance: MONTELUKAST SODIUM
  27. SOLU-MEDROL [Concomitant]
     Active Substance: METHYLPREDNISOLONE SODIUM SUCCINATE
     Indication: Premedication
     Route: 042
     Dates: start: 20171215
  28. GRAVOL [Concomitant]
     Active Substance: DIMENHYDRINATE
     Indication: Premedication
     Route: 042
     Dates: start: 20171215

REACTIONS (39)
  - Visual impairment [Unknown]
  - Optic neuritis [Unknown]
  - Blindness unilateral [Recovering/Resolving]
  - Abdominal pain [Unknown]
  - Biliary colic [Recovered/Resolved]
  - Biliary dilatation [Unknown]
  - Cholelithiasis [Unknown]
  - Liver function test [Recovered/Resolved]
  - Pneumonia [Recovered/Resolved]
  - Kidney infection [Unknown]
  - Productive cough [Recovered/Resolved]
  - Pyrexia [Recovered/Resolved]
  - Bronchitis [Unknown]
  - Asthma [Unknown]
  - Pain in extremity [Not Recovered/Not Resolved]
  - Weight increased [Unknown]
  - Rheumatoid arthritis [Not Recovered/Not Resolved]
  - Ear infection [Recovered/Resolved]
  - Pharyngitis [Recovered/Resolved]
  - Secretion discharge [Recovered/Resolved]
  - Pruritus [Recovering/Resolving]
  - Nausea [Recovering/Resolving]
  - Blood pressure systolic increased [Unknown]
  - Weight decreased [Unknown]
  - Blood pressure increased [Unknown]
  - Blood pressure fluctuation [Unknown]
  - Pruritus [Recovering/Resolving]
  - Gastroenteritis viral [Unknown]
  - Disability assessment scale score increased [Unknown]
  - Infusion related reaction [Recovered/Resolved]
  - Nasopharyngitis [Recovering/Resolving]
  - Ear infection [Unknown]
  - Heart rate increased [Not Recovered/Not Resolved]
  - Blood pressure diastolic increased [Unknown]
  - Urinary tract infection [Recovered/Resolved]
  - Gastric infection [Recovered/Resolved]
  - Blood pressure diastolic abnormal [Unknown]
  - Infusion related reaction [Recovered/Resolved]
  - Body temperature increased [Unknown]

NARRATIVE: CASE EVENT DATE: 20120716
